FAERS Safety Report 4797479-2 (Version None)
Quarter: 2005Q4

REPORT INFORMATION
  Report Type: 
  Country: None (occurrence: None)
  Receive Date: 20051013
  Receipt Date: 20050928
  Transmission Date: 20060501
  Serious: Yes (Other)
  Sender: FDA-Public Use
  Company Number: DE-AMGEN-US154004

PATIENT
  Sex: Male

DRUGS (1)
  1. ENBREL [Suspect]
     Indication: PSORIASIS
     Dates: start: 20050501

REACTIONS (3)
  - CONDITION AGGRAVATED [None]
  - GRANULOMA SKIN [None]
  - RASH PAPULAR [None]
